FAERS Safety Report 5963978-0 (Version None)
Quarter: 2008Q4

REPORT INFORMATION
  Report Type: 
  Country: None (occurrence: None)
  Receive Date: 20081120
  Receipt Date: 20081108
  Transmission Date: 20090506
  Serious: Yes (Other)
  Sender: FDA-Public Use
  Company Number: 230005K08ARG

PATIENT
  Sex: Male

DRUGS (3)
  1. REBIF [Suspect]
  2. BACLOFEN [Concomitant]
  3. GABAPENTIN [Concomitant]

REACTIONS (1)
  - HEPATITIS [None]
